FAERS Safety Report 8169867-8 (Version None)
Quarter: 2012Q1

REPORT INFORMATION
  Report Type: 
  Country: None (occurrence: None)
  Receive Date: 20120222
  Receipt Date: 20120213
  Transmission Date: 20120608
  Serious: Yes (Hospitalization)
  Sender: FDA-Public Use
  Company Number: AUR-APL-2012-00967

PATIENT
  Age: 75 Year
  Sex: Male

DRUGS (5)
  1. ATENOLOL [Suspect]
     Indication: INTENTIONAL OVERDOSE
     Dosage: (14 DOSAGE FORMS, TOTAL) , ORAL
     Route: 048
     Dates: start: 20111223, end: 20111223
  2. ALLOPURINOL [Suspect]
     Indication: ACCIDENTAL OVERDOSE
     Dosage: (2400 MG, TOTAL), ORAL
     Route: 048
     Dates: start: 20111223, end: 20111223
  3. ASCRIPTIN (ASCRIPTIN) [Concomitant]
  4. EUTIROX (LEVOTHYROXINE) [Concomitant]
  5. METFORMIN HCL [Suspect]
     Indication: INTENTIONAL OVERDOSE
     Dosage: (5 GM TOTAL), ORAL
     Route: 048
     Dates: start: 20111223, end: 20111223

REACTIONS (2)
  - ABDOMINAL PAIN [None]
  - HEART RATE DECREASED [None]
